FAERS Safety Report 6371793-1 (Version None)
Quarter: 2009Q3

REPORT INFORMATION
  Report Type: 
  Country: None (occurrence: None)
  Receive Date: 20090918
  Receipt Date: 20090918
  Transmission Date: 20100115
  Serious: Yes (Hospitalization)
  Sender: FDA-Public Use
  Company Number: None

PATIENT
  Sex: Male
  Weight: 81.7 kg

DRUGS (5)
  1. METHOTREXATE [Suspect]
     Dosage: 6700 MG
  2. ATENOLOL [Concomitant]
  3. CHLORTHALIDONE [Concomitant]
  4. LEVOTHYROXINE SODIUM [Concomitant]
  5. SIMVASTATIN [Concomitant]

REACTIONS (2)
  - DIVERTICULUM [None]
  - INTESTINAL PERFORATION [None]
